FAERS Safety Report 17273892 (Version 1)
Quarter: 2020Q1

REPORT INFORMATION
  Report Type: Spontaneous
  Country: US (occurrence: US)
  Receive Date: 20200115
  Receipt Date: 20200115
  Transmission Date: 20200409
  Serious: No
  Sender: FDA-Public Use
  Company Number: US-BAUSCH-BL-2020-000571

PATIENT
  Age: 37 Year
  Sex: Female

DRUGS (1)
  1. RIFAXIMIN. [Suspect]
     Active Substance: RIFAXIMIN
     Indication: LIVER DISORDER
     Route: 065

REACTIONS (2)
  - Inability to afford medication [Unknown]
  - Impaired quality of life [Unknown]
